FAERS Safety Report 23176105 (Version 3)
Quarter: 2023Q4

REPORT INFORMATION
  Report Type: Spontaneous
  Country: TH (occurrence: TH)
  Receive Date: 20231113
  Receipt Date: 20231123
  Transmission Date: 20240110
  Serious: Yes (Hospitalization, Other)
  Sender: FDA-Public Use
  Company Number: TH-009507513-2311THA002691

PATIENT
  Sex: Female

DRUGS (2)
  1. KEYTRUDA [Suspect]
     Active Substance: PEMBROLIZUMAB
     Indication: Endometrial cancer
     Dosage: UNK
  2. LENVATINIB MESYLATE [Suspect]
     Active Substance: LENVATINIB MESYLATE
     Indication: Endometrial cancer
     Dosage: UNK
     Route: 048

REACTIONS (7)
  - Autoimmune disorder [Unknown]
  - Myelosuppression [Unknown]
  - Cancer with a high tumour mutational burden [Unknown]
  - Hyperthyroidism [Unknown]
  - Hospitalisation [Recovered/Resolved]
  - Thyroiditis [Unknown]
  - Alanine aminotransferase increased [Unknown]
